FAERS Safety Report 10758022 (Version 1)
Quarter: 2015Q1

REPORT INFORMATION
  Report Type: Spontaneous
  Country: US (occurrence: US)
  Receive Date: 20150203
  Receipt Date: 20150203
  Transmission Date: 20150721
  Serious: No
  Sender: FDA-Public Use
  Company Number: US-ENDO PHARMACEUTICALS INC.-GLIM20140002

PATIENT
  Age: 44 Year
  Sex: Male

DRUGS (3)
  1. GLIMEPIRIDE TABLETS 1MG [Concomitant]
     Active Substance: GLIMEPIRIDE
     Indication: DIABETES MELLITUS
     Route: 048
     Dates: start: 2012, end: 20140106
  2. GLIMEPIRIDE TABLETS 1MG [Suspect]
     Active Substance: GLIMEPIRIDE
     Route: 048
     Dates: start: 20140107, end: 201402
  3. GLIMEPIRIDE TABLETS 1MG [Suspect]
     Active Substance: GLIMEPIRIDE
     Indication: DIABETES MELLITUS
     Route: 048
     Dates: start: 201402

REACTIONS (2)
  - Weight increased [Not Recovered/Not Resolved]
  - Dyspepsia [Not Recovered/Not Resolved]

NARRATIVE: CASE EVENT DATE: 201402
